FAERS Safety Report 9934497 (Version 1)
Quarter: 2014Q1

REPORT INFORMATION
  Report Type: Spontaneous
  Country: US (occurrence: US)
  Receive Date: 20140228
  Receipt Date: 20140228
  Transmission Date: 20141002
  Serious: Yes (Death)
  Sender: FDA-Public Use
  Company Number: US-ALLERGAN-1403803US

PATIENT
  Age: 90 Year
  Sex: Female

DRUGS (1)
  1. BOTOX [Suspect]
     Indication: HEMIPLEGIA
     Dosage: UNK UNK, SINGLE

REACTIONS (2)
  - Death [Fatal]
  - Off label use [Unknown]
